FAERS Safety Report 17716174 (Version 1)
Quarter: 2020Q2

REPORT INFORMATION
  Report Type: Spontaneous
  Country: US (occurrence: US)
  Receive Date: 20200428
  Receipt Date: 20200428
  Transmission Date: 20200714
  Serious: No
  Sender: FDA-Public Use
  Company Number: US-APOTEX-2020AP009815

PATIENT
  Age: 23 Year
  Sex: Male

DRUGS (16)
  1. BUSPIRONE [Interacting]
     Active Substance: BUSPIRONE HYDROCHLORIDE
     Indication: ANXIETY
     Dosage: 15 MG, QID
     Route: 065
  2. LURASIDONE [Interacting]
     Active Substance: LURASIDONE
     Indication: FLASHBACK
     Dosage: 40 MG, Q.H.S.
     Route: 065
  3. CLOZAPINE. [Interacting]
     Active Substance: CLOZAPINE
     Dosage: 50 MG, UNK
     Route: 065
  4. QUETIAPINE. [Interacting]
     Active Substance: QUETIAPINE
     Indication: SELF-INJURIOUS IDEATION
     Dosage: 12.5 MG, Q.H.S., AS NEEDED
     Route: 065
  5. CLOZAPINE. [Interacting]
     Active Substance: CLOZAPINE
     Indication: SELF-INJURIOUS IDEATION
     Dosage: 6.25 MG, UNK, SLOW TITRTAION
     Route: 065
  6. CLOZAPINE. [Interacting]
     Active Substance: CLOZAPINE
     Dosage: 87.5 MG, UNK
     Route: 065
  7. FLUVOXAMINE [Interacting]
     Active Substance: FLUVOXAMINE
     Indication: OBSESSIVE THOUGHTS
     Dosage: 100 MG, Q.H.S.
     Route: 065
  8. CLOZAPINE. [Interacting]
     Active Substance: CLOZAPINE
     Dosage: 162.5 MG, UNK
     Route: 065
  9. VERAPAMIL [Interacting]
     Active Substance: VERAPAMIL HYDROCHLORIDE
     Indication: TACHYCARDIA
     Dosage: 360 MG, Q.H.S.
     Route: 065
  10. TESTOSTERONE                       /00103102/ [Concomitant]
     Active Substance: TESTOSTERONE PROPIONATE
     Indication: GENDER REASSIGNMENT THERAPY
     Dosage: UNK, Q.WK.
     Route: 065
  11. GABAPENTIN. [Suspect]
     Active Substance: GABAPENTIN
     Indication: ANXIETY
     Dosage: 600 MG, QID
     Route: 065
  12. LORAZEPAM. [Interacting]
     Active Substance: LORAZEPAM
     Indication: ANXIETY
     Dosage: 0.5 MG, BID, AS NEEDED
     Route: 065
  13. FLUDROCORTISONE [Interacting]
     Active Substance: FLUDROCORTISONE
     Indication: HYPOTENSION
     Dosage: 0.2 MG, BID
     Route: 065
  14. CLOZAPINE. [Interacting]
     Active Substance: CLOZAPINE
     Dosage: 62.5 MG, UNK
     Route: 065
  15. MIRTAZAPINE. [Interacting]
     Active Substance: MIRTAZAPINE
     Indication: DEPRESSION
     Dosage: 60 MG, Q.H.S.
     Route: 065
  16. FAMOTIDINE. [Interacting]
     Active Substance: FAMOTIDINE
     Indication: GASTROOESOPHAGEAL REFLUX DISEASE
     Dosage: 20 MG, BID
     Route: 065

REACTIONS (2)
  - Periorbital oedema [Recovered/Resolved]
  - Drug interaction [Unknown]
